FAERS Safety Report 20059507 (Version 1)
Quarter: 2021Q4

REPORT INFORMATION
  Report Type: Other
  Country: FR (occurrence: FR)
  Receive Date: 20211111
  Receipt Date: 20211111
  Transmission Date: 20220303
  Serious: Yes (Other)
  Sender: FDA-Public Use
  Company Number: FR-HARMONY BIOSCIENCES-2021HMY02175

PATIENT
  Age: 25 Year
  Sex: Male
  Weight: 74 kg

DRUGS (2)
  1. WAKIX [Suspect]
     Active Substance: PITOLISANT HYDROCHLORIDE
     Indication: Hypersomnia
     Dosage: 36 MG, 1X/DAY
     Route: 048
     Dates: start: 201708, end: 202012
  2. XYREM [Concomitant]
     Active Substance: SODIUM OXYBATE
     Dosage: UNK

REACTIONS (1)
  - Obesity [Recovering/Resolving]

NARRATIVE: CASE EVENT DATE: 20180201
